FAERS Safety Report 6549418-1 (Version None)
Quarter: 2010Q1

REPORT INFORMATION
  Report Type: 
  Country: None (occurrence: None)
  Receive Date: 20100125
  Receipt Date: 20100115
  Transmission Date: 20100710
  Serious: Yes (Hospitalization)
  Sender: FDA-Public Use
  Company Number: US-ELI_LILLY_AND_COMPANY-US200912002330

PATIENT
  Sex: Male
  Weight: 82.72 kg

DRUGS (12)
  1. GEMCITABINE HCL [Suspect]
     Indication: NON-SMALL CELL LUNG CANCER
     Dosage: 1485 MG, OTHER
     Route: 042
     Dates: start: 20091103
  2. GEMCITABINE HCL [Suspect]
     Dosage: UNK, OTHER
     Route: 042
     Dates: start: 20091201
  3. CETUXIMAB [Suspect]
     Indication: NON-SMALL CELL LUNG CANCER
     Dosage: 396 MG, OTHER
     Route: 042
     Dates: start: 20091103
  4. CETUXIMAB [Suspect]
     Dosage: UNK, OTHER
     Route: 042
     Dates: start: 20091201
  5. CARBOPLATIN [Suspect]
     Indication: NON-SMALL CELL LUNG CANCER
     Dosage: 377 MG, OTHER
     Route: 042
     Dates: start: 20091103
  6. CARBOPLATIN [Suspect]
     Dosage: UNK, OTHER
     Route: 042
     Dates: start: 20091201
  7. ZOCOR [Concomitant]
     Dosage: 20 MG, DAILY (1/D)
     Route: 048
     Dates: end: 20091201
  8. NORVASC [Concomitant]
     Dosage: 10 MG, DAILY (1/D)
     Route: 048
  9. FLOMAX [Concomitant]
     Dosage: 0.4 MG, DAILY (1/D)
     Route: 048
  10. ATIVAN [Concomitant]
     Dosage: 1 MG, DAILY (1/D)
     Route: 048
  11. SYMBICORT [Concomitant]
     Dosage: UNK, 2/D
     Route: 055
  12. NEUPOGEN [Concomitant]
     Dosage: 300 UG, UNK
     Route: 058
     Dates: start: 20091203

REACTIONS (1)
  - ABDOMINAL PAIN [None]
